FAERS Safety Report 19777152 (Version 1)
Quarter: 2021Q3

REPORT INFORMATION
  Report Type: Spontaneous
  Country: US (occurrence: US)
  Receive Date: 20210902
  Receipt Date: 20210902
  Transmission Date: 20211014
  Serious: No
  Sender: FDA-Public Use
  Company Number: US-SA-2021SA287253

PATIENT
  Age: 29 Year
  Sex: Female

DRUGS (1)
  1. KEVZARA [Suspect]
     Active Substance: SARILUMAB
     Indication: RHEUMATOID ARTHRITIS
     Dosage: 200 MG, QOW
     Route: 058
     Dates: start: 20210714

REACTIONS (4)
  - Dyspnoea [Unknown]
  - Dizziness [Unknown]
  - Headache [Unknown]
  - Injection site rash [Unknown]

NARRATIVE: CASE EVENT DATE: 2021
